FAERS Safety Report 20052541 (Version 1)
Quarter: 2021Q4

REPORT INFORMATION
  Report Type: Spontaneous
  Country: US (occurrence: US)
  Receive Date: 20211110
  Receipt Date: 20211110
  Transmission Date: 20220304
  Serious: Yes (Life-Threatening, Hospitalization, Other)
  Sender: FDA-Public Use
  Company Number: US-MLMSERVICE-20211028-3191670-1

PATIENT
  Age: 31 Year
  Sex: Female

DRUGS (2)
  1. PROPRANOLOL [Suspect]
     Active Substance: PROPRANOLOL HYDROCHLORIDE
     Indication: Supraventricular tachycardia
  2. ADENOSINE [Concomitant]
     Active Substance: ADENOSINE
     Indication: Supraventricular tachycardia

REACTIONS (4)
  - Hypotension [Recovering/Resolving]
  - Cardiac arrest [Recovered/Resolved]
  - Thyrotoxic crisis [Recovering/Resolving]
  - Drug ineffective for unapproved indication [Recovered/Resolved]
